FAERS Safety Report 4300724-0 (Version None)
Quarter: 2004Q1

REPORT INFORMATION
  Report Type: 
  Country: None (occurrence: None)
  Receive Date: 20040217
  Receipt Date: 20040204
  Transmission Date: 20041129
  Serious: Yes (Death)
  Sender: FDA-Public Use
  Company Number: 204550

PATIENT
  Sex: 0

DRUGS (1)
  1. RITUXAN [Suspect]
     Indication: LYMPHOMA
     Dosage: 375 MG/M2, INTRAVENOUS
     Route: 042

REACTIONS (2)
  - CARDIAC FAILURE [None]
  - MYOCARDIAL FIBROSIS [None]
